FAERS Safety Report 25355245 (Version 2)
Quarter: 2025Q2

REPORT INFORMATION
  Report Type: Report from Study
  Country: US (occurrence: US)
  Receive Date: 20250524
  Receipt Date: 20250528
  Transmission Date: 20250717
  Serious: Yes (Other)
  Sender: JOHNSON AND JOHNSON
  Company Number: US-JNJFOC-20250521398

PATIENT
  Age: 60 Year
  Sex: Female

DRUGS (4)
  1. SPRAVATO [Suspect]
     Active Substance: ESKETAMINE
     Indication: Depression
     Dosage: ^56 MG, 1 TOTAL DOSE^
     Route: 045
     Dates: start: 20250505, end: 20250505
  2. SPRAVATO [Suspect]
     Active Substance: ESKETAMINE
     Dosage: ^84 MG, 2 TOTAL DOSES^
     Route: 045
     Dates: start: 20250508, end: 20250513
  3. SPRAVATO [Suspect]
     Active Substance: ESKETAMINE
     Dosage: ^84 MG, 1 TOTAL DOSE^
     Route: 045
     Dates: start: 20250515, end: 20250515
  4. ADDERALL [Concomitant]
     Active Substance: AMPHETAMINE ASPARTATE\AMPHETAMINE SULFATE\DEXTROAMPHETAMINE SACCHARATE\DEXTROAMPHETAMINE SULFATE
     Indication: Product used for unknown indication

REACTIONS (9)
  - Dissociation [Recovered/Resolved]
  - Hypertension [Recovered/Resolved]
  - Anxiety [Recovered/Resolved]
  - Panic reaction [Recovered/Resolved]
  - Hyperhidrosis [Recovered/Resolved]
  - Tremor [Recovered/Resolved]
  - Communication disorder [Recovered/Resolved]
  - Blood glucose decreased [Recovered/Resolved]
  - Nausea [Recovered/Resolved]

NARRATIVE: CASE EVENT DATE: 20250515
